FAERS Safety Report 6364305-X (Version None)
Quarter: 2009Q3

REPORT INFORMATION
  Report Type: 
  Country: None (occurrence: None)
  Receive Date: 20090919
  Receipt Date: 20090717
  Transmission Date: 20100115
  Serious: No
  Sender: FDA-Public Use
  Company Number: US-ABBOTT-09P-163-0586727-00

PATIENT
  Sex: Male
  Weight: 77.18 kg

DRUGS (9)
  1. HUMIRA [Suspect]
     Indication: CROHN'S DISEASE
     Route: 058
     Dates: start: 20090606
  2. PHENERGAN [Concomitant]
     Indication: CROHN'S DISEASE
     Dates: end: 20090717
  3. PHENERGAN [Concomitant]
     Indication: NAUSEA
  4. ATENOLOL [Concomitant]
     Indication: HYPERTENSION
  5. UNKNOWN MEDICATION [Concomitant]
     Indication: CROHN'S DISEASE
     Route: 048
  6. LOMOTIL [Concomitant]
     Indication: CROHN'S DISEASE
     Route: 048
  7. PAXIL CR [Concomitant]
     Indication: ANXIETY
  8. SEROQUEL [Concomitant]
     Indication: ANXIETY
  9. PREDNISONE [Concomitant]
     Indication: CROHN'S DISEASE

REACTIONS (3)
  - INJECTION SITE PAIN [None]
  - NAUSEA [None]
  - PAIN IN EXTREMITY [None]
